FAERS Safety Report 5643046-8 (Version None)
Quarter: 2008Q1

REPORT INFORMATION
  Report Type: 
  Country: None (occurrence: None)
  Receive Date: 20080226
  Receipt Date: 20080214
  Transmission Date: 20080703
  Serious: Yes (Hospitalization)
  Sender: FDA-Public Use
  Company Number: 2008SP003442

PATIENT
  Age: 70 Year
  Sex: Female
  Weight: 104 kg

DRUGS (5)
  1. TEMODAL [Suspect]
     Indication: GLIOBLASTOMA
     Dosage: 160 MG; QD
     Dates: start: 20071126, end: 20080122
  2. L-THYROXIN [Concomitant]
  3. HYDROCHLOROTHIAZIDE [Concomitant]
  4. SIMVASTATIN [Concomitant]
  5. DEXAMETHASONE TAB [Concomitant]

REACTIONS (3)
  - DIABETES MELLITUS INADEQUATE CONTROL [None]
  - ERYSIPELAS [None]
  - RASH [None]
